FAERS Safety Report 11958131 (Version 1)
Quarter: 2016Q1

REPORT INFORMATION
  Report Type: Report from Study
  Country: US (occurrence: US)
  Receive Date: 20160126
  Receipt Date: 20160126
  Transmission Date: 20160526
  Serious: Yes (Other)
  Sender: FDA-Public Use
  Company Number: US-ABBVIE-15K-163-1345859-00

PATIENT
  Age: 49 Year
  Sex: Female

DRUGS (1)
  1. HUMIRA [Suspect]
     Active Substance: ADALIMUMAB
     Indication: PSORIASIS
     Route: 058
     Dates: start: 20140327

REACTIONS (4)
  - Drug ineffective [Unknown]
  - Gastrointestinal haemorrhage [Unknown]
  - Unevaluable event [Unknown]
  - Binge drinking [Recovered/Resolved]

NARRATIVE: CASE EVENT DATE: 201501
